FAERS Safety Report 22023408 (Version 1)
Quarter: 2023Q1

REPORT INFORMATION
  Report Type: Other
  Country: GB (occurrence: GB)
  Receive Date: 20230223
  Receipt Date: 20230223
  Transmission Date: 20230417
  Serious: Yes (Other)
  Sender: FDA-Public Use
  Company Number: GB-MHRA-MED-202302100858302520-YNFQS

PATIENT

DRUGS (2)
  1. GABAPENTIN [Suspect]
     Active Substance: GABAPENTIN
     Indication: Neck pain
     Dosage: 100 MILLIGRAM, TID
     Route: 065
     Dates: start: 20210101, end: 20230210
  2. AMLODIPINE [Concomitant]
     Active Substance: AMLODIPINE BESYLATE
     Indication: Blood pressure abnormal
     Dosage: UNK
     Route: 065
     Dates: start: 20210101

REACTIONS (3)
  - Alopecia [Not Recovered/Not Resolved]
  - Pain of skin [Unknown]
  - Facial pain [Unknown]

NARRATIVE: CASE EVENT DATE: 20220101
